FAERS Safety Report 17668431 (Version 2)
Quarter: 2020Q2

REPORT INFORMATION
  Report Type: Spontaneous
  Country: US (occurrence: US)
  Receive Date: 20200414
  Receipt Date: 20200515
  Transmission Date: 20200713
  Serious: Yes (Other)
  Sender: FDA-Public Use
  Company Number: US-GLENMARK PHARMACEUTICALS-2020GMK046673

PATIENT

DRUGS (6)
  1. TOPIRAMATE TABLETS USP, 50 MG [Suspect]
     Active Substance: TOPIRAMATE
     Dosage: 50 MILLIGRAM, BID (RESTARTED)
     Route: 048
     Dates: start: 202001
  2. WELLBUTRIN [Concomitant]
     Active Substance: BUPROPION HYDROCHLORIDE
     Indication: PRODUCT USED FOR UNKNOWN INDICATION
     Dosage: UNK
     Route: 065
  3. TOPIRAMATE TABLETS USP, 50 MG [Suspect]
     Active Substance: TOPIRAMATE
     Dosage: 50 MILLIGRAM, BID (STARTED YEAR: 2008-2009; ONE TABLET IN MORNING AND NIGHT)
     Route: 048
  4. TOPIRAMATE TABLETS USP, 50 MG [Suspect]
     Active Substance: TOPIRAMATE
     Dosage: UNK, DOSE REDUCED AFTER CNS EFFECTS
     Route: 065
  5. TOPIRAMATE TABLETS USP, 50 MG [Suspect]
     Active Substance: TOPIRAMATE
     Dosage: 150 MILLIGRAM, QD (IN 2008 OR 2009)
     Route: 048
  6. TOPIRAMATE TABLETS USP, 50 MG [Suspect]
     Active Substance: TOPIRAMATE
     Indication: DEPRESSION
     Dosage: UNK, STARTED WITH LOW DOSE (IN 2008 OR 2009)
     Route: 065

REACTIONS (9)
  - Intrinsic factor deficiency [Unknown]
  - Ocular discomfort [Not Recovered/Not Resolved]
  - Weight decreased [Not Recovered/Not Resolved]
  - Eye pain [Not Recovered/Not Resolved]
  - Pernicious anaemia [Unknown]
  - Visual impairment [Not Recovered/Not Resolved]
  - Alopecia [Not Recovered/Not Resolved]
  - Product use in unapproved indication [Unknown]
  - Cognitive disorder [Not Recovered/Not Resolved]
